FAERS Safety Report 7675904-7 (Version None)
Quarter: 2011Q3

REPORT INFORMATION
  Report Type: 
  Country: None (occurrence: None)
  Receive Date: 20110811
  Receipt Date: 20110803
  Transmission Date: 20111222
  Serious: Yes (Hospitalization, Other)
  Sender: FDA-Public Use
  Company Number: US-BIOGENIDEC-2010BI014405

PATIENT
  Age: 65 Year
  Sex: Female

DRUGS (3)
  1. AVONEX [Suspect]
     Indication: MULTIPLE SCLEROSIS
     Route: 030
     Dates: start: 20100301
  2. AVONEX [Suspect]
     Route: 030
     Dates: start: 20021218, end: 20030801
  3. AVONEX [Suspect]
     Route: 030
     Dates: start: 20030801

REACTIONS (5)
  - FALL [None]
  - HIP FRACTURE [None]
  - CONVULSION [None]
  - TRANSFUSION [None]
  - ARTHRALGIA [None]
